FAERS Safety Report 21518714 (Version 1)
Quarter: 2022Q4

REPORT INFORMATION
  Report Type: Report from Study
  Country: US (occurrence: US)
  Receive Date: 20221028
  Receipt Date: 20221028
  Transmission Date: 20230112
  Serious: No
  Sender: FDA-Public Use
  Company Number: US-ABBVIE-4132844

PATIENT
  Age: 80 Year
  Sex: Female

DRUGS (14)
  1. IMBRUVICA [Suspect]
     Active Substance: IBRUTINIB
     Indication: Chronic lymphocytic leukaemia
     Route: 048
     Dates: start: 20220908
  2. 2 mg Tizanidine [Concomitant]
     Indication: Product used for unknown indication
  3. 300 mg Allopurinol [Concomitant]
     Indication: Product used for unknown indication
  4. 10 mg Montelukast [Concomitant]
     Indication: Product used for unknown indication
  5. 5 mg Amlodipine besylate [Concomitant]
     Indication: Product used for unknown indication
  6. OMEPRAZOLE [Concomitant]
     Active Substance: OMEPRAZOLE
     Indication: Product used for unknown indication
  7. TYLENOL [Concomitant]
     Active Substance: ACETAMINOPHEN
     Indication: Product used for unknown indication
  8. 10 mg Rosuvastatin [Concomitant]
     Indication: Product used for unknown indication
  9. 60 mg Duloxetine [Concomitant]
     Indication: Product used for unknown indication
  10. Ultra Calcium D3 [Concomitant]
     Indication: Product used for unknown indication
  11. PRAVASTATIN [Concomitant]
     Active Substance: PRAVASTATIN
     Indication: Product used for unknown indication
  12. LOSARTAN [Concomitant]
     Active Substance: LOSARTAN
     Indication: Product used for unknown indication
  13. VITAMIN B12 [Concomitant]
     Active Substance: CYANOCOBALAMIN
     Indication: COVID-19 immunisation
  14. 2.5 mg Eliquis [Concomitant]
     Indication: COVID-19 immunisation

REACTIONS (1)
  - Insomnia [Not Recovered/Not Resolved]

NARRATIVE: CASE EVENT DATE: 20220901
